FAERS Safety Report 5515717-5 (Version None)
Quarter: 2007Q4

REPORT INFORMATION
  Report Type: 
  Country: None (occurrence: None)
  Receive Date: 20071113
  Receipt Date: 20070913
  Transmission Date: 20080405
  Serious: No
  Sender: FDA-Public Use
  Company Number: A0681844A

PATIENT
  Age: 61 Year
  Sex: Male

DRUGS (4)
  1. COREG [Suspect]
     Dosage: 25MG TWICE PER DAY
     Route: 048
     Dates: start: 20010101
  2. COUMADIN [Concomitant]
  3. ENALAPRIL MALEATE [Concomitant]
  4. DIGITEK [Concomitant]

REACTIONS (1)
  - FATIGUE [None]
